FAERS Safety Report 24290796 (Version 2)
Quarter: 2024Q3

REPORT INFORMATION
  Report Type: Report from Study
  Country: US (occurrence: US)
  Receive Date: 20240906
  Receipt Date: 20240918
  Transmission Date: 20241017
  Serious: Yes (Hospitalization, Other)
  Sender: ROCHE
  Company Number: US-ROCHE-2006025

PATIENT
  Age: 46 Year
  Sex: Female
  Weight: 72.57 kg

DRUGS (5)
  1. OCREVUS [Suspect]
     Active Substance: OCRELIZUMAB
     Indication: Multiple sclerosis
     Dosage: 1ST HALF OF INFUSION
     Route: 050
     Dates: start: 20170925
  2. OCREVUS [Suspect]
     Active Substance: OCRELIZUMAB
     Dosage: 1ST HALF OF INFUSION
     Route: 050
     Dates: start: 20170925
  3. LACTOBACILLUS ACIDOPHILUS [Concomitant]
     Active Substance: LACTOBACILLUS ACIDOPHILUS
     Route: 048
  4. ALLOPURINOL [Concomitant]
     Active Substance: ALLOPURINOL
     Indication: Gout
     Route: 048
  5. AMITRIPTYLINE [Concomitant]
     Active Substance: AMITRIPTYLINE
     Indication: Cystitis interstitial
     Route: 048
     Dates: start: 2014

REACTIONS (16)
  - Infusion related reaction [Unknown]
  - Oral mucosal blistering [Unknown]
  - Headache [Unknown]
  - Burns second degree [Unknown]
  - Nausea [Unknown]
  - Fatigue [Unknown]
  - Chills [Unknown]
  - Genital burning sensation [Unknown]
  - Muscle spasms [Not Recovered/Not Resolved]
  - Influenza like illness [Unknown]
  - Hyperhidrosis [Unknown]
  - Burning sensation [Recovered/Resolved]
  - Renal failure [Recovered/Resolved]
  - Pain [Recovered/Resolved]
  - Infection [Recovered/Resolved]
  - Visual impairment [Not Recovered/Not Resolved]

NARRATIVE: CASE EVENT DATE: 20170925
